FAERS Safety Report 20074895 (Version 1)
Quarter: 2021Q4

REPORT INFORMATION
  Report Type: Spontaneous
  Country: US (occurrence: US)
  Receive Date: 20211116
  Receipt Date: 20211116
  Transmission Date: 20220303
  Serious: No
  Sender: FDA-Public Use
  Company Number: US-SA-SAC20211108001167

PATIENT
  Sex: Female

DRUGS (1)
  1. DUPIXENT [Suspect]
     Active Substance: DUPILUMAB
     Indication: Dermatitis atopic
     Dosage: 300 MG, QOW
     Route: 058
     Dates: start: 20210414

REACTIONS (5)
  - Gait disturbance [Recovered/Resolved]
  - Pain [Recovered/Resolved]
  - Injection site swelling [Recovered/Resolved]
  - Injection site induration [Recovered/Resolved]
  - Rash erythematous [Recovering/Resolving]

NARRATIVE: CASE EVENT DATE: 20210101
